FAERS Safety Report 9892264 (Version 1)
Quarter: 2014Q1

REPORT INFORMATION
  Report Type: Spontaneous
  Country: ES (occurrence: ES)
  Receive Date: 20140212
  Receipt Date: 20140212
  Transmission Date: 20141002
  Serious: Yes (Life-Threatening)
  Sender: FDA-Public Use
  Company Number: ES-PFIZER INC-2014039499

PATIENT
  Age: 72 Year
  Sex: Female

DRUGS (7)
  1. LYRICA [Suspect]
     Indication: NEURALGIA
     Dosage: 75 MG, 2X/DAY (75 MG EVERY 12 HOURS)
     Route: 048
  2. ADIRO [Interacting]
     Dosage: 100 MG, 1X/DAY (100 MG EVERY 24 HOURS)
     Route: 048
     Dates: start: 20140115
  3. AMOXICILINA - ACIDO CLAVULANICO SALA [Interacting]
     Indication: PNEUMONIA BACTERIAL
     Dosage: 1 DF, 3X/DAY (2000 MG/200 MG EVERY 8 HOURS)
     Route: 042
     Dates: start: 20140115
  4. LEVETIRACETAM SANDOZ [Interacting]
     Indication: PETIT MAL EPILEPSY
     Dosage: 500 MG, 1X/DAY (500 MG/24 HOURS)
     Route: 048
     Dates: start: 20140117, end: 20140119
  5. LEVETIRACETAM SANDOZ [Interacting]
     Dosage: 500 MG, 2X/DAY (500 MG EVERY 12 HOURS)
     Route: 048
     Dates: start: 20140120, end: 20140121
  6. SINERGINA [Interacting]
     Dosage: 100 MG, 3X/DAY (100 MG EVERY 8 HOURS)
     Route: 048
  7. TRAMADOL NORMON [Interacting]
     Indication: ANALGESIC THERAPY
     Dosage: 50 MG, 2X/DAY (50 MG EVERY 12 HOURS)
     Route: 048
     Dates: start: 20140114

REACTIONS (2)
  - Drug interaction [Recovering/Resolving]
  - Pancytopenia [Recovering/Resolving]
